FAERS Safety Report 7557946-5 (Version None)
Quarter: 2011Q2

REPORT INFORMATION
  Report Type: 
  Country: None (occurrence: None)
  Receive Date: 20110620
  Receipt Date: 20110609
  Transmission Date: 20111010
  Serious: Yes (Other)
  Sender: FDA-Public Use
  Company Number: B0726948A

PATIENT
  Sex: Female

DRUGS (1)
  1. AVAMYS [Suspect]
     Route: 065

REACTIONS (1)
  - ASTHMA [None]
